FAERS Safety Report 4732417-X (Version None)
Quarter: 2005Q3

REPORT INFORMATION
  Report Type: 
  Country: None (occurrence: None)
  Receive Date: 20050801
  Receipt Date: 20050720
  Transmission Date: 20060218
  Serious: Yes (Other)
  Sender: FDA-Public Use
  Company Number: HQWYE404622JUL05

PATIENT
  Age: 63 Year
  Sex: Female

DRUGS (3)
  1. PREMARIN [Suspect]
     Indication: MENOPAUSAL SYMPTOMS
  2. CYCRIN [Suspect]
     Indication: MENOPAUSAL SYMPTOMS
  3. PROVERA [Suspect]

REACTIONS (5)
  - BREAST CANCER METASTATIC [None]
  - DISEASE RECURRENCE [None]
  - METASTASES TO BREAST [None]
  - METASTASES TO LUNG [None]
  - OESTROGEN RECEPTOR ASSAY POSITIVE [None]
